FAERS Safety Report 6333941-9 (Version None)
Quarter: 2009Q3

REPORT INFORMATION
  Report Type: 
  Country: None (occurrence: None)
  Receive Date: 20090829
  Receipt Date: 20090625
  Transmission Date: 20100115
  Serious: No
  Sender: FDA-Public Use
  Company Number: US-ABBOTT-09P-163-0582627-00

PATIENT
  Sex: Male

DRUGS (5)
  1. SIMCOR [Suspect]
     Indication: BLOOD CHOLESTEROL INCREASED
     Dosage: 500MG/20MG
     Dates: start: 20090601
  2. DICLOFENAC [Concomitant]
     Indication: GLUCOSE TOLERANCE IMPAIRED
  3. METFORMIN HCL [Concomitant]
     Indication: GLUCOSE TOLERANCE IMPAIRED
  4. ASPIRIN [Concomitant]
     Indication: FLUSHING
     Route: 048
     Dates: start: 20090601
  5. ASPIRIN [Concomitant]
     Indication: PROPHYLAXIS

REACTIONS (2)
  - EXCORIATION [None]
  - SYNCOPE [None]
